FAERS Safety Report 10178045 (Version 1)
Quarter: 2014Q2

REPORT INFORMATION
  Report Type: Spontaneous
  Country: US (occurrence: US)
  Receive Date: 20140518
  Receipt Date: 20140518
  Transmission Date: 20141212
  Serious: No
  Sender: FDA-Public Use
  Company Number: US-009507513-1405USA007217

PATIENT
  Age: 39 Year
  Sex: Female

DRUGS (1)
  1. REMERON [Suspect]
     Indication: HYPEREMESIS GRAVIDARUM
     Route: 048

REACTIONS (2)
  - Exposure during pregnancy [Unknown]
  - Off label use [Unknown]
